FAERS Safety Report 4350204-1 (Version None)
Quarter: 2004Q2

REPORT INFORMATION
  Report Type: 
  Country: None (occurrence: None)
  Receive Date: 20040428
  Receipt Date: 20040409
  Transmission Date: 20050107
  Serious: Yes (Hospitalization)
  Sender: FDA-Public Use
  Company Number: 2004-BP-02385NB

PATIENT
  Age: 87 Year
  Sex: Female

DRUGS (1)
  1. MOBIC [Suspect]
     Indication: MONARTHRITIS
     Dosage: 10 MG
     Route: 048
     Dates: end: 20040318

REACTIONS (3)
  - ANAEMIA HAEMOLYTIC AUTOIMMUNE [None]
  - COUGH [None]
  - PYREXIA [None]
